FAERS Safety Report 23314559 (Version 5)
Quarter: 2024Q1

REPORT INFORMATION
  Report Type: Report from Study
  Country: CA (occurrence: CA)
  Receive Date: 20231219
  Receipt Date: 20240221
  Transmission Date: 20240410
  Serious: Yes (Hospitalization, Other)
  Sender: FDA-Public Use
  Company Number: CA-UCBSA-2023059092

PATIENT
  Sex: Male

DRUGS (3)
  1. BIMEKIZUMAB [Suspect]
     Active Substance: BIMEKIZUMAB
     Indication: Psoriasis
     Dosage: 320 MILLIGRAM, EV 4 WEEKS
     Route: 058
     Dates: start: 20231011, end: 20231011
  2. BIMEKIZUMAB [Suspect]
     Active Substance: BIMEKIZUMAB
     Indication: Hidradenitis
     Dosage: 320 MILLIGRAM, EV 4 WEEKS
     Route: 058
     Dates: start: 2023
  3. BIMEKIZUMAB [Suspect]
     Active Substance: BIMEKIZUMAB
     Indication: Off label use
     Dosage: 320 MILLIGRAM, EV 4 WEEKS
     Route: 058
     Dates: start: 2023

REACTIONS (16)
  - Renal failure [Recovering/Resolving]
  - Myocardial infarction [Recovering/Resolving]
  - Hidradenitis [Not Recovered/Not Resolved]
  - Radiotherapy [Recovering/Resolving]
  - Physiotherapy [Recovering/Resolving]
  - Infection [Unknown]
  - Skin laceration [Unknown]
  - Blood disorder [Unknown]
  - Pain [Unknown]
  - Contusion [Unknown]
  - Haemorrhage [Unknown]
  - Pyrexia [Unknown]
  - Tremor [Unknown]
  - Dialysis [Unknown]
  - Off label use [Unknown]
  - Inappropriate schedule of product administration [Unknown]

NARRATIVE: CASE EVENT DATE: 20230101
